FAERS Safety Report 9498889 (Version 1)
Quarter: 2013Q3

REPORT INFORMATION
  Report Type: Spontaneous
  Country: US (occurrence: US)
  Receive Date: 20130904
  Receipt Date: 20130904
  Transmission Date: 20140515
  Serious: Yes (Other)
  Sender: FDA-Public Use
  Company Number: GB-UCBSA-096248

PATIENT
  Sex: Female

DRUGS (2)
  1. VIMPAT [Suspect]
  2. ZONEGRAN [Concomitant]

REACTIONS (1)
  - Convulsion [Unknown]
